FAERS Safety Report 8308313-8 (Version None)
Quarter: 2012Q2

REPORT INFORMATION
  Report Type: 
  Country: None (occurrence: None)
  Receive Date: 20120424
  Receipt Date: 20120410
  Transmission Date: 20120825
  Serious: Yes (Other)
  Sender: FDA-Public Use
  Company Number: CA-ROCHE-1058763

PATIENT
  Age: 31 Year
  Sex: Female

DRUGS (8)
  1. DOXORUBICIN HCL [Suspect]
     Indication: PRODUCT USED FOR UNKNOWN INDICATION
     Route: 042
  2. PACLITAXEL [Concomitant]
     Route: 042
  3. VINORELBINE TARTRATE [Concomitant]
     Route: 042
  4. HERCEPTIN [Suspect]
     Route: 037
  5. THIOTEPA [Concomitant]
  6. HERCEPTIN [Suspect]
     Route: 037
  7. HERCEPTIN [Suspect]
     Indication: PRODUCT USED FOR UNKNOWN INDICATION
     Route: 037
  8. HERCEPTIN [Suspect]
     Route: 037

REACTIONS (11)
  - CENTRAL NERVOUS SYSTEM LESION [None]
  - ANAEMIA [None]
  - EYELID PTOSIS [None]
  - HEADACHE [None]
  - SPINAL DISORDER [None]
  - HERPES ZOSTER [None]
  - NEUTROPENIA [None]
  - VIITH NERVE PARALYSIS [None]
  - LETHARGY [None]
  - NEOPLASM MALIGNANT [None]
  - FATIGUE [None]
